FAERS Safety Report 15687239 (Version 3)
Quarter: 2019Q1

REPORT INFORMATION
  Report Type: Spontaneous
  Country: CA (occurrence: CA)
  Receive Date: 20181204
  Receipt Date: 20190204
  Transmission Date: 20190417
  Serious: Yes (Other)
  Sender: FDA-Public Use
  Company Number: CA-CELLTRION INC.-2018CA023665

PATIENT

DRUGS (12)
  1. DIPHENHYDRAMINE. [Concomitant]
     Active Substance: DIPHENHYDRAMINE
     Dosage: 50 MG
  2. INFLECTRA [Suspect]
     Active Substance: INFLIXIMAB-DYYB
     Indication: CROHN^S DISEASE
     Dosage: 300 MG, AT 2, 6, THEN EVERY 8 WEEKS
     Route: 042
     Dates: start: 20181012
  3. INFLECTRA [Suspect]
     Active Substance: INFLIXIMAB-DYYB
     Dosage: 300 MG, AT 2, 6, THEN EVERY 8 WEEKS
     Route: 042
     Dates: start: 20181025
  4. TYLENOL 8HR [Concomitant]
     Active Substance: ACETAMINOPHEN
     Dosage: UNK
  5. LORAZEPAM. [Concomitant]
     Active Substance: LORAZEPAM
     Dosage: 0.5 MG 1-2 TAB BID AS NEEDED
     Route: 060
  6. HYDROCORTISONE. [Concomitant]
     Active Substance: HYDROCORTISONE
     Dosage: 100 MG
     Dates: start: 20081121
  7. PREDNISONE. [Concomitant]
     Active Substance: PREDNISONE
     Dosage: UNK
  8. INFLECTRA [Suspect]
     Active Substance: INFLIXIMAB-DYYB
     Dosage: 300 MG, AT 2, 6, THEN EVERY 8 WEEKS
     Route: 042
     Dates: start: 20181121
  9. PARACETAMOL [Concomitant]
     Active Substance: ACETAMINOPHEN
     Dosage: UNK
  10. BENADRYL [Concomitant]
     Active Substance: DIPHENHYDRAMINE HYDROCHLORIDE
     Dosage: UNK
  11. INFLECTRA [Suspect]
     Active Substance: INFLIXIMAB-DYYB
     Dosage: 300 MG, AT 2, 6, THEN EVERY 8 WEEKS
     Route: 042
     Dates: start: 20190116
  12. LOMOTIL [LOPERAMIDE HYDROCHLORIDE] [Concomitant]
     Dosage: 2 TABLETS

REACTIONS (11)
  - Erythema [Recovering/Resolving]
  - Skin exfoliation [Not Recovered/Not Resolved]
  - Nausea [Unknown]
  - Influenza like illness [Unknown]
  - Heart rate irregular [Unknown]
  - Drug intolerance [Unknown]
  - Pharyngeal oedema [Recovered/Resolved]
  - Condition aggravated [Recovering/Resolving]
  - Pruritus [Recovered/Resolved]
  - Pruritus [Recovered/Resolved]
  - Swelling face [Recovering/Resolving]

NARRATIVE: CASE EVENT DATE: 201810
